FAERS Safety Report 5031108-8 (Version None)
Quarter: 2006Q2

REPORT INFORMATION
  Report Type: 
  Country: None (occurrence: None)
  Receive Date: 20060619
  Receipt Date: 20060619
  Transmission Date: 20061013
  Serious: Yes (Life-Threatening, Hospitalization)
  Sender: FDA-Public Use
  Company Number: None

PATIENT
  Age: 29 Year
  Sex: Female
  Weight: 58.9676 kg

DRUGS (3)
  1. ORTHO EVRA [Suspect]
     Indication: CONTRACEPTION
     Dosage: .75 MG ESTROGIN/6 MG PROGESTIN 1 PATCH PER WEEK TRANSDERMAL
     Route: 062
     Dates: start: 20050516, end: 20060521
  2. ADVIL [Concomitant]
  3. TYLENOL (CAPLET) [Concomitant]

REACTIONS (4)
  - ABDOMINAL PAIN UPPER [None]
  - CHEST PAIN [None]
  - HAEMOPTYSIS [None]
  - PULMONARY EMBOLISM [None]
